FAERS Safety Report 8553495-6 (Version None)
Quarter: 2012Q3

REPORT INFORMATION
  Report Type: 
  Country: None (occurrence: None)
  Receive Date: 20120731
  Receipt Date: 20120727
  Transmission Date: 20120928
  Serious: Yes (Other)
  Sender: FDA-Public Use
  Company Number: US-PFIZER INC-2012036924

PATIENT
  Age: 82 Year
  Sex: Female

DRUGS (3)
  1. XANAX [Suspect]
     Dosage: UNK
  2. XANAX [Suspect]
     Dosage: 0.5 MG, UNK
  3. XANAX [Suspect]
     Dosage: 1 MG, 3X/DAY

REACTIONS (14)
  - CHEST PAIN [None]
  - PANIC REACTION [None]
  - DECREASED APPETITE [None]
  - ABNORMAL BEHAVIOUR [None]
  - MYOCARDIAL INFARCTION [None]
  - ANTISOCIAL BEHAVIOUR [None]
  - ABASIA [None]
  - MALAISE [None]
  - CRYING [None]
  - PALPITATIONS [None]
  - FEELING ABNORMAL [None]
  - HYPERTENSION [None]
  - ANXIETY [None]
  - MENTAL DISORDER [None]
